FAERS Safety Report 15023802 (Version 1)
Quarter: 2018Q2

REPORT INFORMATION
  Report Type: Spontaneous
  Country: US (occurrence: US)
  Receive Date: 20180525
  Receipt Date: 20180525
  Transmission Date: 20180711
  Serious: No
  Sender: FDA-Public Use
  Company Number: None

PATIENT
  Age: 29 Year
  Sex: Female
  Weight: 67.13 kg

DRUGS (4)
  1. NEXPLANON [Suspect]
     Active Substance: ETONOGESTREL
     Dates: start: 20151026, end: 20180515
  2. CRANBERRY PILLS [Concomitant]
  3. MARSHMALLOW ROOT [Concomitant]
  4. ALOE SUPPLEMENTS [Concomitant]

REACTIONS (4)
  - Premenstrual syndrome [None]
  - Cystitis interstitial [None]
  - Bladder pain [None]
  - Urinary tract infection [None]

NARRATIVE: CASE EVENT DATE: 20171112
